FAERS Safety Report 20768912 (Version 1)
Quarter: 2022Q2

REPORT INFORMATION
  Report Type: Spontaneous
  Country: US (occurrence: None)
  Receive Date: 20220428
  Receipt Date: 20220428
  Transmission Date: 20220721
  Serious: Yes (Other)
  Sender: FDA-Public Use
  Company Number: None

PATIENT
  Age: 58 Year
  Sex: Female
  Weight: 77.85 kg

DRUGS (5)
  1. FIRDAPSE [Suspect]
     Active Substance: AMIFAMPRIDINE PHOSPHATE
     Indication: Myasthenic syndrome
     Dosage: FREQUENCY : 4 TIMES A DAY;?
     Route: 048
  2. PYRIDOSTIGMINE [Concomitant]
     Active Substance: PYRIDOSTIGMINE
     Dates: start: 20130131
  3. MYCOPHENOLIC ACID [Concomitant]
     Active Substance: MYCOPHENOLIC ACID
     Dates: start: 20120131
  4. chlorzoxasone [Concomitant]
     Dates: start: 20150131
  5. Gammagard (IVIG) [Concomitant]
     Dates: start: 20140131

REACTIONS (9)
  - Drug effect less than expected [None]
  - Therapeutic product effect decreased [None]
  - Headache [None]
  - Depressed mood [None]
  - Depressed mood [None]
  - Paraesthesia [None]
  - Myalgia [None]
  - Loss of personal independence in daily activities [None]
  - Feeling abnormal [None]
